FAERS Safety Report 16633918 (Version 1)
Quarter: 2019Q3

REPORT INFORMATION
  Report Type: Spontaneous
  Country: US (occurrence: US)
  Receive Date: 20190725
  Receipt Date: 20190725
  Transmission Date: 20191004
  Serious: No
  Sender: FDA-Public Use
  Company Number: US-DERMIRA, INC.-US-2019DER000268

PATIENT

DRUGS (4)
  1. QBREXZA [Suspect]
     Active Substance: GLYCOPYRRONIUM TOSYLATE
     Indication: HYPERHIDROSIS
     Dosage: UNK, QD
     Route: 061
     Dates: start: 201904, end: 201904
  2. QBREXZA [Suspect]
     Active Substance: GLYCOPYRRONIUM TOSYLATE
     Dosage: UNK, EVERY OTHER DAY
     Route: 061
     Dates: start: 201904
  3. BOTOX [Concomitant]
     Active Substance: ONABOTULINUMTOXINA
     Indication: HYPERHIDROSIS
     Dosage: INJECTIONS IN THE HEAD, FACE, AND NECK EVERY 3 MONTHS
     Route: 058
  4. MARIJUANA [Concomitant]
     Active Substance: CANNABIS SATIVA SUBSP. INDICA TOP
     Indication: PRODUCT USE IN UNAPPROVED INDICATION
     Dosage: USES 4 - 5 TIMES A DAY
     Route: 055

REACTIONS (4)
  - Intentional product misuse [Not Recovered/Not Resolved]
  - Abnormal sensation in eye [Recovered/Resolved]
  - Eye pruritus [Recovered/Resolved]
  - Mydriasis [Not Recovered/Not Resolved]

NARRATIVE: CASE EVENT DATE: 201904
